FAERS Safety Report 20325164 (Version 1)
Quarter: 2022Q1

REPORT INFORMATION
  Report Type: Spontaneous
  Country: GB (occurrence: GB)
  Receive Date: 20220111
  Receipt Date: 20220111
  Transmission Date: 20220423
  Serious: Yes (Other)
  Sender: FDA-Public Use
  Company Number: GB-MHRA-EYC 00269719

PATIENT
  Age: 26 Year
  Sex: Female
  Weight: 83 kg

DRUGS (3)
  1. CANDESARTAN [Suspect]
     Active Substance: CANDESARTAN
     Indication: Ill-defined disorder
     Dosage: 2 MILLIGRAM;
     Route: 048
     Dates: start: 20211213, end: 20211216
  2. CANDESARTAN [Suspect]
     Active Substance: CANDESARTAN
     Dosage: 2 MILLIGRAM;
     Route: 048
     Dates: start: 20211214, end: 20211217
  3. MIRTAZAPINE [Suspect]
     Active Substance: MIRTAZAPINE
     Indication: Ill-defined disorder
     Dosage: UNK
     Route: 065

REACTIONS (19)
  - Adverse drug reaction [Recovering/Resolving]
  - Migraine [Recovering/Resolving]
  - Syncope [Recovering/Resolving]
  - Vomiting [Recovering/Resolving]
  - Pain [Recovering/Resolving]
  - Dehydration [Recovering/Resolving]
  - Renal pain [Recovering/Resolving]
  - Ocular discomfort [Recovering/Resolving]
  - Dizziness [Recovering/Resolving]
  - Vertigo [Recovering/Resolving]
  - Illness [Recovering/Resolving]
  - Nausea [Recovering/Resolving]
  - Abdominal pain upper [Recovering/Resolving]
  - Decreased appetite [Recovering/Resolving]
  - Influenza like illness [Recovering/Resolving]
  - Malaise [Recovering/Resolving]
  - Pollakiuria [Recovering/Resolving]
  - Balance disorder [Recovering/Resolving]
  - Sinusitis [Recovering/Resolving]

NARRATIVE: CASE EVENT DATE: 20211213
